FAERS Safety Report 16751908 (Version 3)
Quarter: 2021Q2

REPORT INFORMATION
  Report Type: Report from Study
  Country: CZ (occurrence: US)
  Receive Date: 20190828
  Receipt Date: 20210609
  Transmission Date: 20210716
  Serious: Yes (Other)
  Sender: FDA-Public Use
  Company Number: CZ-JNJFOC-20190830202

PATIENT

DRUGS (4)
  1. MELPHALAN FLUFENAMIDE [Suspect]
     Active Substance: MELPHALAN FLUFENAMIDE
     Indication: PLASMA CELL MYELOMA
     Route: 042
  2. DARATUMUMAB [Suspect]
     Active Substance: DARATUMUMAB
     Indication: PLASMA CELL MYELOMA
     Route: 042
  3. DEXAMETHASONE. [Suspect]
     Active Substance: DEXAMETHASONE
     Indication: PLASMA CELL MYELOMA
     Route: 042
  4. BORTEZOMIB. [Suspect]
     Active Substance: BORTEZOMIB
     Indication: PLASMA CELL MYELOMA
     Route: 058

REACTIONS (5)
  - Pneumonia pneumococcal [Unknown]
  - White blood cell count decreased [Unknown]
  - Thrombocytopenia [Unknown]
  - Lymphocyte count decreased [Unknown]
  - Neutropenia [Unknown]
